FAERS Safety Report 6345209-5 (Version None)
Quarter: 2009Q3

REPORT INFORMATION
  Report Type: 
  Country: None (occurrence: None)
  Receive Date: 20090821
  Receipt Date: 20090626
  Transmission Date: 20100115
  Serious: No
  Sender: FDA-Public Use
  Company Number: 8048377

PATIENT
  Age: 21 Year
  Sex: Female

DRUGS (1)
  1. CIMZIA [Suspect]
     Dosage: 400 MG SC
     Route: 058
     Dates: start: 20090529

REACTIONS (5)
  - DIARRHOEA [None]
  - FREQUENT BOWEL MOVEMENTS [None]
  - INSOMNIA [None]
  - NAUSEA [None]
  - VOMITING [None]
